FAERS Safety Report 5427450-9 (Version None)
Quarter: 2007Q3

REPORT INFORMATION
  Report Type: 
  Country: None (occurrence: None)
  Receive Date: 20070824
  Receipt Date: 20070824
  Transmission Date: 20080115
  Serious: Yes (Other)
  Sender: FDA-Public Use
  Company Number: None

PATIENT
  Age: 11 Year
  Sex: Male
  Weight: 37.195 kg

DRUGS (2)
  1. VYVANSE [Suspect]
     Indication: ATTENTION DEFICIT/HYPERACTIVITY DISORDER
     Dosage: QAM PO
     Route: 048
     Dates: start: 20070821, end: 20070821
  2. STRATTERA [Suspect]
     Dosage: QAM PO
     Route: 048

REACTIONS (6)
  - AGGRESSION [None]
  - AGITATION [None]
  - HYPERREFLEXIA [None]
  - HYPOMANIA [None]
  - INSOMNIA [None]
  - PSYCHOMOTOR HYPERACTIVITY [None]
